FAERS Safety Report 14653339 (Version 2)
Quarter: 2018Q4

REPORT INFORMATION
  Report Type: Spontaneous
  Country: FR (occurrence: FR)
  Receive Date: 20180319
  Receipt Date: 20181023
  Transmission Date: 20190204
  Serious: Yes (Other)
  Sender: FDA-Public Use
  Company Number: FR-MERCK KGAA-2044046

PATIENT
  Age: 42 Year

DRUGS (1)
  1. EUTHYROX [Suspect]
     Active Substance: LEVOTHYROXINE SODIUM
     Indication: POST PROCEDURAL HYPOTHYROIDISM
     Dates: start: 201704

REACTIONS (14)
  - Irritable bowel syndrome [None]
  - Impaired work ability [None]
  - Weight decreased [None]
  - Blood thyroid stimulating hormone abnormal [None]
  - Atrial fibrillation [None]
  - Fatigue [None]
  - Thyroxine free increased [None]
  - Burning sensation [None]
  - Depression [None]
  - Lymphocyte count decreased [None]
  - Gastrointestinal disorder [None]
  - Gastrointestinal tract irritation [None]
  - Alopecia [None]
  - Vertigo [None]

NARRATIVE: CASE EVENT DATE: 20170606
